FAERS Safety Report 4435889-3 (Version None)
Quarter: 2004Q3

REPORT INFORMATION
  Report Type: 
  Country: None (occurrence: None)
  Receive Date: 20040726
  Receipt Date: 20040302
  Transmission Date: 20050211
  Serious: No
  Sender: FDA-Public Use
  Company Number: USA040360703

PATIENT
  Age: 45 Year
  Sex: Female

DRUGS (4)
  1. FORTEO [Suspect]
     Indication: ADRENAL NEOPLASM
     Dosage: 20 UG DAY
     Dates: start: 20040101
  2. FORTEO [Suspect]
     Indication: BENIGN TUMOUR EXCISION
     Dosage: 20 UG DAY
     Dates: start: 20040101
  3. FORTEO [Suspect]
     Indication: OSTEOPENIA
     Dosage: 20 UG DAY
     Dates: start: 20040101
  4. CORTEF [Concomitant]

REACTIONS (2)
  - ABNORMAL DREAMS [None]
  - SLEEP DISORDER [None]
